FAERS Safety Report 15276350 (Version 1)
Quarter: 2018Q4

REPORT INFORMATION
  Report Type: Spontaneous
  Country: IN (occurrence: IN)
  Receive Date: 20180814
  Receipt Date: 20180814
  Transmission Date: 20190204
  Serious: Yes (Disabling, Other)
  Sender: FDA-Public Use
  Company Number: IN-ACELLA PHARMACEUTICALS, LLC-2053695

PATIENT
  Age: 30 Year
  Sex: Female

DRUGS (5)
  1. PHENOBARBITONE [Concomitant]
     Active Substance: PHENOBARBITAL
  2. CLOBAZAM. [Concomitant]
     Active Substance: CLOBAZAM
  3. PHENYTOIN SODIUM. [Suspect]
     Active Substance: PHENYTOIN SODIUM
     Indication: EPILEPSY
  4. LEVETIRACETAM. [Concomitant]
     Active Substance: LEVETIRACETAM
  5. CLONAZEPAM. [Concomitant]
     Active Substance: CLONAZEPAM

REACTIONS (7)
  - Tetany [Unknown]
  - Joint swelling [Unknown]
  - Joint stiffness [Unknown]
  - Hyperkinesia [Unknown]
  - Musculoskeletal deformity [Unknown]
  - Epilepsy [Unknown]
  - Joint range of motion decreased [Unknown]
